FAERS Safety Report 4625320-7 (Version None)
Quarter: 2005Q2

REPORT INFORMATION
  Report Type: 
  Country: None (occurrence: None)
  Receive Date: 20050401
  Receipt Date: 20020419
  Transmission Date: 20051028
  Serious: Yes (Other)
  Sender: FDA-Public Use
  Company Number: US-GLAXOSMITHKLINE-A0366526A

PATIENT
  Age: 85 Year
  Sex: Female

DRUGS (1)
  1. PAXIL [Suspect]
     Indication: DEPRESSION
     Dosage: 20MG UNKNOWN
     Route: 048
     Dates: start: 19990101, end: 20000101

REACTIONS (7)
  - AMNESIA [None]
  - BEDRIDDEN [None]
  - BLOOD PRESSURE FLUCTUATION [None]
  - DISABILITY [None]
  - MENINGITIS BACTERIAL [None]
  - RASH [None]
  - TREMOR [None]
